FAERS Safety Report 9172045 (Version 1)
Quarter: 2013Q1

REPORT INFORMATION
  Report Type: Spontaneous
  Country: FR (occurrence: FR)
  Receive Date: 20130319
  Receipt Date: 20130319
  Transmission Date: 20140127
  Serious: Yes (Hospitalization)
  Sender: FDA-Public Use
  Company Number: PHHY2013FR025121

PATIENT
  Age: 82 Year
  Sex: Female

DRUGS (7)
  1. TEGRETOL [Suspect]
     Dosage: 400  MG, 0.5 DF BID
     Route: 048
     Dates: end: 20121117
  2. DEROXAT [Suspect]
     Dosage: 20 MG, UNK
     Route: 048
     Dates: end: 20121117
  3. INDAPAMIDE SANDOZ [Suspect]
     Dosage: 1.5 MG, QD
     Route: 048
     Dates: end: 20121117
  4. CLOPIDOGREL [Suspect]
     Dosage: 75 MG, QD
     Route: 048
     Dates: end: 20121117
  5. ACEBUTOLOL [Concomitant]
     Dosage: UNK UKN, UNK
  6. LEVOTHYROX [Concomitant]
     Dosage: 25 MG, UNK
  7. PERINDOPRIL [Concomitant]
     Dosage: 4 MG, UNK

REACTIONS (1)
  - Hyponatraemia [Recovered/Resolved]
